FAERS Safety Report 13961910 (Version 2)
Quarter: 2017Q4

REPORT INFORMATION
  Report Type: Spontaneous
  Country: US (occurrence: US)
  Receive Date: 20170912
  Receipt Date: 20171006
  Transmission Date: 20180320
  Serious: Yes (Other)
  Sender: FDA-Public Use
  Company Number: US-009507513-1709USA004055

PATIENT
  Age: 58 Year
  Sex: Female

DRUGS (5)
  1. BELSOMRA [Suspect]
     Active Substance: SUVOREXANT
     Indication: INSOMNIA
     Dosage: UNK
     Route: 048
     Dates: start: 2017
  2. REMERON [Concomitant]
     Active Substance: MIRTAZAPINE
  3. KLONOPIN [Concomitant]
     Active Substance: CLONAZEPAM
  4. TRAZODONE HYDROCHLORIDE. [Concomitant]
     Active Substance: TRAZODONE HYDROCHLORIDE
     Route: 048
  5. BELSOMRA [Suspect]
     Active Substance: SUVOREXANT
     Dosage: 1 DF, TIW
     Route: 048
     Dates: start: 20170307, end: 2017

REACTIONS (5)
  - Paralysis [Recovered/Resolved]
  - Speech disorder [Recovered/Resolved]
  - Sleep terror [Unknown]
  - Paraesthesia [Recovered/Resolved]
  - Insomnia [Unknown]

NARRATIVE: CASE EVENT DATE: 2017
